FAERS Safety Report 9610717 (Version 1)
Quarter: 2013Q4

REPORT INFORMATION
  Report Type: Report from Study
  Country: DK (occurrence: DK)
  Receive Date: 20131009
  Receipt Date: 20131009
  Transmission Date: 20140711
  Serious: Yes (Other)
  Sender: FDA-Public Use
  Company Number: DK-BAXTER-2013BAX039712

PATIENT
  Sex: Female

DRUGS (4)
  1. SENDOXAN [Suspect]
     Indication: BREAST CANCER
     Dosage: DAY 1
     Route: 042
  2. METHOTREXATE [Suspect]
     Indication: BREAST CANCER
     Dosage: DAY 1
     Route: 065
  3. FLUOROURACIL [Suspect]
     Indication: BREAST CANCER
     Dosage: DAY 1
     Route: 065
  4. TAMOXIFEN [Suspect]
     Indication: BREAST CANCER
     Route: 065

REACTIONS (2)
  - Malignant respiratory tract neoplasm [Unknown]
  - Lung neoplasm malignant [Unknown]
